FAERS Safety Report 4342470-3 (Version None)
Quarter: 2004Q2

REPORT INFORMATION
  Report Type: 
  Country: None (occurrence: None)
  Receive Date: 20040420
  Receipt Date: 20040409
  Transmission Date: 20050107
  Serious: Yes (Other)
  Sender: FDA-Public Use
  Company Number: 04-00180

PATIENT
  Sex: Female
  Weight: 56.6996 kg

DRUGS (1)
  1. NYSTATIN + TRIAMCINOLONE ACETONIDE [Suspect]
     Dosage: 0.1%, TOPICAL
     Route: 061

REACTIONS (5)
  - DEPRESSION [None]
  - FEAR [None]
  - MEDICATION ERROR [None]
  - OSTEOPOROSIS [None]
  - PAIN [None]
